FAERS Safety Report 5410205-9 (Version None)
Quarter: 2007Q3

REPORT INFORMATION
  Report Type: 
  Country: None (occurrence: None)
  Receive Date: 20070809
  Receipt Date: 20070612
  Transmission Date: 20080115
  Serious: Yes (Hospitalization)
  Sender: FDA-Public Use
  Company Number: ES-MERCK-0706ESP00024

PATIENT
  Age: 41 Year
  Sex: Male
  Weight: 68 kg

DRUGS (5)
  1. MAXALT [Suspect]
     Indication: MIGRAINE
     Route: 048
     Dates: start: 20040101, end: 20070401
  2. VOLTAREN [Suspect]
     Indication: FRACTURE
     Route: 048
     Dates: start: 20070328
  3. ACETAMINOPHEN [Suspect]
     Indication: FRACTURE
     Route: 048
     Dates: start: 20070328
  4. OMEPRAZOLE [Suspect]
     Route: 065
     Dates: start: 20070328
  5. ZOMIG [Concomitant]
     Indication: MIGRAINE
     Route: 065

REACTIONS (2)
  - CHEST PAIN [None]
  - DRUG INTERACTION [None]
